FAERS Safety Report 5759794-5 (Version None)
Quarter: 2008Q2

REPORT INFORMATION
  Report Type: 
  Country: None (occurrence: None)
  Receive Date: 20080605
  Receipt Date: 20080527
  Transmission Date: 20081010
  Serious: Yes (Hospitalization)
  Sender: FDA-Public Use
  Company Number: B0523443A

PATIENT
  Age: 11 Year
  Sex: Male

DRUGS (2)
  1. MERCAPTOPURINE [Suspect]
     Route: 048
  2. THIOGUANINE [Suspect]

REACTIONS (1)
  - PANCREATITIS [None]
